FAERS Safety Report 18017296 (Version 2)
Quarter: 2020Q3

REPORT INFORMATION
  Report Type: Spontaneous
  Country: US (occurrence: US)
  Receive Date: 20200713
  Receipt Date: 20200817
  Transmission Date: 20201103
  Serious: No
  Sender: FDA-Public Use
  Company Number: US-TAKEDA-2020TUS030037

PATIENT
  Age: 31 Year
  Sex: Male
  Weight: 117.01 kg

DRUGS (1)
  1. DEXILANT [Suspect]
     Active Substance: DEXLANSOPRAZOLE
     Indication: GASTROOESOPHAGEAL REFLUX DISEASE
     Dosage: 60 MILLIGRAM, QD
     Route: 048
     Dates: start: 201911, end: 202007

REACTIONS (3)
  - Pain [Unknown]
  - Incorrect product administration duration [Unknown]
  - Extra dose administered [Unknown]

NARRATIVE: CASE EVENT DATE: 201911
